FAERS Safety Report 7990897-0 (Version None)
Quarter: 2011Q4

REPORT INFORMATION
  Report Type: 
  Country: None (occurrence: None)
  Receive Date: 20111219
  Receipt Date: 20111202
  Transmission Date: 20120403
  Serious: Yes (Life-Threatening, Other)
  Sender: FDA-Public Use
  Company Number: JP-ROCHE-1014070

PATIENT
  Age: 51 Year
  Sex: Male

DRUGS (1)
  1. AVASTIN [Suspect]
     Indication: LARGE INTESTINE CARCINOMA
     Route: 041
     Dates: start: 20100609, end: 20111114

REACTIONS (2)
  - PORTAL VEIN PRESSURE INCREASED [None]
  - OESOPHAGEAL VARICES HAEMORRHAGE [None]
